FAERS Safety Report 5914929-6 (Version None)
Quarter: 2008Q4

REPORT INFORMATION
  Report Type: 
  Country: None (occurrence: None)
  Receive Date: 20081010
  Receipt Date: 20081002
  Transmission Date: 20090506
  Serious: Yes (Other)
  Sender: FDA-Public Use
  Company Number: JP-ELI_LILLY_AND_COMPANY-JP200810000870

PATIENT
  Age: 67 Year
  Sex: Female

DRUGS (5)
  1. GEMZAR [Suspect]
     Indication: PANCREATIC CARCINOMA STAGE IV
     Dosage: 1200 MG, OTHER
     Route: 042
     Dates: start: 20080704
  2. RINDERON /00008501/ [Concomitant]
     Indication: PROPHYLAXIS
     Dosage: 1 MG, DAILY (1/D)
     Route: 048
     Dates: start: 20080822
  3. DEXART [Concomitant]
     Indication: PANCREATIC CARCINOMA STAGE IV
     Dosage: 8 MG, OTHER
     Route: 042
     Dates: start: 20080704
  4. NASEA [Concomitant]
     Indication: PROPHYLAXIS
     Dosage: 0.3 MG, OTHER
     Route: 042
     Dates: start: 20080704
  5. TAKEPRON [Concomitant]
     Indication: GASTRIC ULCER
     Dosage: 15 MG, DAILY (1/D)
     Route: 048
     Dates: start: 20080718

REACTIONS (1)
  - HEPATIC STEATOSIS [None]
